FAERS Safety Report 19503816 (Version 3)
Quarter: 2021Q3

REPORT INFORMATION
  Report Type: Report from Study
  Country: MX (occurrence: MX)
  Receive Date: 20210707
  Receipt Date: 20210903
  Transmission Date: 20211014
  Serious: Yes (Death, Other)
  Sender: FDA-Public Use
  Company Number: MX-INCYTE CORPORATION-2021IN005987

PATIENT

DRUGS (1)
  1. JAKAVI [Suspect]
     Active Substance: RUXOLITINIB
     Indication: MYELOFIBROSIS
     Dosage: 1 DF, BID (7 YEARS AGO(DOES NOT KNOW THE EXACT DATE)
     Route: 048

REACTIONS (6)
  - Pyrexia [Recovering/Resolving]
  - Inflammation [Recovering/Resolving]
  - Muscle rupture [Recovering/Resolving]
  - Gait disturbance [Recovering/Resolving]
  - Muscle spasms [Recovering/Resolving]
  - Death [Fatal]

NARRATIVE: CASE EVENT DATE: 20210823
